FAERS Safety Report 17270563 (Version 1)
Quarter: 2020Q1

REPORT INFORMATION
  Report Type: Spontaneous
  Country: US (occurrence: US)
  Receive Date: 20200114
  Receipt Date: 20200114
  Transmission Date: 20200409
  Serious: Yes (Other)
  Sender: FDA-Public Use
  Company Number: US-FRESENIUS KABI-FK202000360

PATIENT
  Age: 52 Year
  Sex: Male

DRUGS (2)
  1. LEVETIRACETAM (MANUFACTURER UNKNOWN) [Suspect]
     Active Substance: LEVETIRACETAM
     Indication: SEIZURE
     Route: 042
  2. SODIUM CHLORIDE. [Concomitant]
     Active Substance: SODIUM CHLORIDE
     Indication: PRODUCT USED FOR UNKNOWN INDICATION
     Route: 065

REACTIONS (1)
  - Rhabdomyolysis [Recovering/Resolving]
